FAERS Safety Report 18653939 (Version 1)
Quarter: 2020Q4

REPORT INFORMATION
  Report Type: Spontaneous
  Country: US (occurrence: US)
  Receive Date: 20201223
  Receipt Date: 20201223
  Transmission Date: 20210114
  Serious: Yes (Other)
  Sender: FDA-Public Use
  Company Number: US-SA-2020SA364111

PATIENT

DRUGS (9)
  1. SCOPOLAMINE [HYOSCINE HYDROBROMIDE] [Concomitant]
     Active Substance: SCOPOLAMINE
  2. DIAZEPAM. [Concomitant]
     Active Substance: DIAZEPAM
  3. DUPIXENT [Suspect]
     Active Substance: DUPILUMAB
     Indication: ASTHMA
     Dosage: 300 MG, QOW
     Route: 058
     Dates: start: 20200811
  4. PANTOPRAZOLE [Concomitant]
     Active Substance: PANTOPRAZOLE
  5. PREDNISONE. [Concomitant]
     Active Substance: PREDNISONE
  6. DESVENLAFAXINE [DESVENLAFAXINE FUMARATE] [Concomitant]
  7. FONDAPARINUX [Concomitant]
     Active Substance: FONDAPARINUX
  8. SPIRONOLACTONE. [Concomitant]
     Active Substance: SPIRONOLACTONE
  9. LATUDA [Concomitant]
     Active Substance: LURASIDONE HYDROCHLORIDE

REACTIONS (1)
  - Renal failure [Not Recovered/Not Resolved]

NARRATIVE: CASE EVENT DATE: 2020
